FAERS Safety Report 20994650 (Version 2)
Quarter: 2022Q2

REPORT INFORMATION
  Report Type: Spontaneous
  Country: IN (occurrence: IN)
  Receive Date: 20220622
  Receipt Date: 20220630
  Transmission Date: 20220721
  Serious: Yes (Death, Life-Threatening, Hospitalization, Other)
  Sender: FDA-Public Use
  Company Number: IN-MLMSERVICE-20220614-3611957-1

PATIENT
  Age: 60 Year
  Sex: Female

DRUGS (6)
  1. METHOTREXATE SODIUM [Interacting]
     Active Substance: METHOTREXATE SODIUM
     Indication: Rheumatoid arthritis
     Dosage: 15 MG, WEEKLY
     Route: 048
     Dates: start: 2017
  2. MANNITOL [Suspect]
     Active Substance: MANNITOL
     Dosage: UNK
     Route: 042
  3. OMNIPAQUE [Interacting]
     Active Substance: IOHEXOL
     Indication: Scan with contrast
     Dosage: 60 ML, SINGLE
     Route: 042
  4. OMNIPAQUE [Interacting]
     Active Substance: IOHEXOL
     Dosage: 50 ML, SINGLE
     Route: 042
  5. ACETAMINOPHEN [Concomitant]
     Active Substance: ACETAMINOPHEN
     Dosage: UNK
     Route: 042
  6. LEVETIRACETAM [Concomitant]
     Active Substance: LEVETIRACETAM
     Dosage: UNK
     Route: 042

REACTIONS (13)
  - Cardiac arrest [Fatal]
  - Pancytopenia [Fatal]
  - Bradycardia [Fatal]
  - Leukoencephalopathy [Fatal]
  - Hypotension [Fatal]
  - Liver function test abnormal [Fatal]
  - Multiple organ dysfunction syndrome [Fatal]
  - Drug interaction [Fatal]
  - Ventricular hypokinesia [Fatal]
  - Renal impairment [Fatal]
  - Toxicity to various agents [Fatal]
  - Pericardial effusion [Fatal]
  - Rash erythematous [Unknown]
